FAERS Safety Report 25467309 (Version 1)
Quarter: 2025Q2

REPORT INFORMATION
  Report Type: Spontaneous
  Country: ES (occurrence: ES)
  Receive Date: 20250623
  Receipt Date: 20250623
  Transmission Date: 20250717
  Serious: Yes (Hospitalization, Other)
  Sender: AUROBINDO
  Company Number: ES-AEMPS-1691310

PATIENT
  Age: 80 Year
  Sex: Female

DRUGS (2)
  1. HYDROCHLOROTHIAZIDE [Suspect]
     Active Substance: HYDROCHLOROTHIAZIDE
     Indication: Hypertension
     Route: 048
     Dates: start: 20240723, end: 20241022
  2. XARELTO [Suspect]
     Active Substance: RIVAROXABAN
     Indication: Atrial fibrillation
     Dosage: 15 MILLIGRAM, ONCE A DAY ( 1 BREAKFAST TABLET)
     Route: 048
     Dates: start: 20220215, end: 20241121

REACTIONS (1)
  - Renal vasculitis [Not Recovered/Not Resolved]

NARRATIVE: CASE EVENT DATE: 20241031
